FAERS Safety Report 24693603 (Version 1)
Quarter: 2024Q4

REPORT INFORMATION
  Report Type: Spontaneous
  Country: AU (occurrence: AU)
  Receive Date: 20241204
  Receipt Date: 20241204
  Transmission Date: 20250114
  Serious: Yes (Hospitalization)
  Sender: ROCHE
  Company Number: AU-002147023-NVSC2024AU228400

PATIENT
  Age: 49 Year
  Sex: Female

DRUGS (1)
  1. XOLAIR [Suspect]
     Active Substance: OMALIZUMAB
     Indication: Urticaria chronic
     Route: 065
     Dates: start: 202308

REACTIONS (5)
  - Muscular weakness [Unknown]
  - Hypotonia [Unknown]
  - Asthenia [Unknown]
  - Limb discomfort [Unknown]
  - Somnolence [Unknown]
